FAERS Safety Report 5093881-2 (Version None)
Quarter: 2006Q3

REPORT INFORMATION
  Report Type: 
  Country: None (occurrence: None)
  Receive Date: 20060829
  Receipt Date: 20060829
  Transmission Date: 20061208
  Serious: Yes (Other)
  Sender: FDA-Public Use
  Company Number: None

PATIENT
  Age: 58 Year
  Sex: Female
  Weight: 61.2356 kg

DRUGS (1)
  1. LIPITOR [Suspect]
     Indication: BLOOD CHOLESTEROL INCREASED
     Dosage: 10MG EVERY DAY PO
     Route: 048
     Dates: start: 20030721, end: 20060713

REACTIONS (7)
  - ACTIVITIES OF DAILY LIVING IMPAIRED [None]
  - ASTHENIA [None]
  - BACK PAIN [None]
  - DYSSTASIA [None]
  - IMPAIRED WORK ABILITY [None]
  - INTERVERTEBRAL DISC PROTRUSION [None]
  - MUSCULAR WEAKNESS [None]
